FAERS Safety Report 11689745 (Version 5)
Quarter: 2016Q1

REPORT INFORMATION
  Report Type: Spontaneous
  Country: US (occurrence: US)
  Receive Date: 20151102
  Receipt Date: 20160225
  Transmission Date: 20160525
  Serious: Yes (Other)
  Sender: FDA-Public Use
  Company Number: US-GLAXOSMITHKLINE-US2015GSK156018

PATIENT
  Age: 48 Year
  Sex: Female
  Weight: 43 kg

DRUGS (2)
  1. FLONASE ALLERGY RELIEF [Suspect]
     Active Substance: FLUTICASONE PROPIONATE
     Indication: MULTIPLE ALLERGIES
     Dosage: UNK
  2. FLONASE [Suspect]
     Active Substance: FLUTICASONE PROPIONATE
     Indication: MULTIPLE ALLERGIES
     Dosage: UNK UNK, QD
     Dates: start: 1995

REACTIONS (13)
  - Nasal mucosal disorder [Unknown]
  - Arthritis [Recovered/Resolved]
  - Back pain [Recovered/Resolved]
  - Sinus headache [Unknown]
  - Bone pain [Recovered/Resolved]
  - Tendonitis [Unknown]
  - Neck pain [Recovered/Resolved]
  - Sinusitis [Unknown]
  - Epistaxis [Unknown]
  - Musculoskeletal pain [Recovered/Resolved]
  - Immobile [Unknown]
  - Myalgia [Unknown]
  - Throat irritation [Recovered/Resolved]
